FAERS Safety Report 16231585 (Version 2)
Quarter: 2019Q2

REPORT INFORMATION
  Report Type: Spontaneous
  Country: CZ (occurrence: CZ)
  Receive Date: 20190424
  Receipt Date: 20190628
  Transmission Date: 20190711
  Serious: Yes (Hospitalization, Other)
  Sender: FDA-Public Use
  Company Number: CZ-AUROBINDO-AUR-APL-2019-021995

PATIENT

DRUGS (5)
  1. PARACETAMOL TABLET [Suspect]
     Active Substance: ACETAMINOPHEN
     Indication: MUSCULOSKELETAL PAIN
     Dosage: UNK, 6 OR MORE TABLETAS A DAY
     Route: 065
  2. TRAMADOL. [Suspect]
     Active Substance: TRAMADOL
     Indication: MUSCULOSKELETAL PAIN
     Dosage: UNK
     Route: 065
  3. DICLOFENAC [Suspect]
     Active Substance: DICLOFENAC
     Indication: MUSCULOSKELETAL PAIN
     Dosage: 50 MILLIGRAM, TWO TIMES A DAY
     Route: 065
  4. PARACETAMOL TABLET [Suspect]
     Active Substance: ACETAMINOPHEN
     Indication: PAIN
  5. DICLOFENAC [Suspect]
     Active Substance: DICLOFENAC
     Indication: PAIN

REACTIONS (10)
  - Gastric haemorrhage [Unknown]
  - Nausea [Recovered/Resolved]
  - Hypertension [Unknown]
  - Drug ineffective [Unknown]
  - Gastric mucosal lesion [Unknown]
  - Gastrointestinal ulcer haemorrhage [Recovered/Resolved]
  - Abdominal pain upper [Unknown]
  - Discoloured vomit [Unknown]
  - Therapeutic product effect incomplete [Unknown]
  - Abdominal discomfort [Recovered/Resolved]
